FAERS Safety Report 9768309 (Version 1)
Quarter: 2013Q4

REPORT INFORMATION
  Report Type: Report from Study
  Country: JP (occurrence: JP)
  Receive Date: 20131217
  Receipt Date: 20131217
  Transmission Date: 20140711
  Serious: Yes (Hospitalization, Other)
  Sender: FDA-Public Use
  Company Number: JP-TAKEDA-2013TJP003741

PATIENT
  Age: 68 Year
  Sex: Male
  Weight: 70.4 kg

DRUGS (4)
  1. ALOGLIPTIN, PIOGLITAZONE [Suspect]
     Indication: TYPE 2 DIABETES MELLITUS
     Dosage: 1 DF, QD
     Route: 048
     Dates: start: 20130918
  2. SONIAS COMBINATION TABLETS LD [Concomitant]
     Indication: TYPE 2 DIABETES MELLITUS
     Dosage: 1 DF, QD
     Route: 048
     Dates: end: 20130917
  3. GLIMEPIRIDE [Concomitant]
     Indication: TYPE 2 DIABETES MELLITUS
     Dosage: 1 MG, 1 DAYS
     Route: 048
     Dates: end: 20121118
  4. GLIMEPIRIDE [Concomitant]
     Dosage: 3 MG, 1 DAYS
     Route: 048
     Dates: start: 20121119

REACTIONS (1)
  - Lung neoplasm malignant [Unknown]
